FAERS Safety Report 5273609-3 (Version None)
Quarter: 2007Q1

REPORT INFORMATION
  Report Type: 
  Country: None (occurrence: None)
  Receive Date: 20070323
  Receipt Date: 20070321
  Transmission Date: 20070707
  Serious: Yes (Other)
  Sender: FDA-Public Use
  Company Number: US-BRISTOL-MYERS SQUIBB COMPANY-13721477

PATIENT

DRUGS (1)
  1. KENALOG-40 [Suspect]

REACTIONS (1)
  - ENDOPHTHALMITIS [None]
